FAERS Safety Report 19467755 (Version 1)
Quarter: 2021Q2

REPORT INFORMATION
  Report Type: Spontaneous
  Country: US (occurrence: US)
  Receive Date: 20210628
  Receipt Date: 20210628
  Transmission Date: 20210717
  Serious: Yes (Other)
  Sender: FDA-Public Use
  Company Number: None

PATIENT
  Age: 36 Year
  Sex: Female
  Weight: 60.75 kg

DRUGS (1)
  1. ESCITALOPRAM [Suspect]
     Active Substance: ESCITALOPRAM OXALATE
     Indication: POST-TRAUMATIC STRESS DISORDER
     Dates: start: 20201015, end: 20210628

REACTIONS (10)
  - Disease progression [None]
  - Antinuclear antibody positive [None]
  - Rash [None]
  - Abortion spontaneous [None]
  - Memory impairment [None]
  - Fatigue [None]
  - Arthralgia [None]
  - Maternal exposure during pregnancy [None]
  - Histone antibody positive [None]
  - Lupus-like syndrome [None]

NARRATIVE: CASE EVENT DATE: 20210401
